FAERS Safety Report 11539374 (Version 2)
Quarter: 2016Q2

REPORT INFORMATION
  Report Type: Spontaneous
  Country: HU (occurrence: HU)
  Receive Date: 20150923
  Receipt Date: 20160608
  Transmission Date: 20160815
  Serious: Yes (Hospitalization, Other)
  Sender: FDA-Public Use
  Company Number: HU-ABBVIE-15K-076-1466309-00

PATIENT
  Age: 21 Year
  Sex: Female

DRUGS (2)
  1. HUMIRA [Suspect]
     Active Substance: ADALIMUMAB
     Indication: CROHN^S DISEASE
     Route: 058
     Dates: start: 201210
  2. HEPARIN [Concomitant]
     Active Substance: HEPARIN SODIUM
     Indication: PRODUCT USED FOR UNKNOWN INDICATION
     Dates: start: 201505

REACTIONS (25)
  - Surgery [Unknown]
  - Abdominal pain lower [Unknown]
  - Nausea [Unknown]
  - Gastrointestinal wall thickening [Unknown]
  - Anal fistula [Unknown]
  - Jejunostomy [Unknown]
  - Abdominal pain [Unknown]
  - Vomiting [Recovered/Resolved]
  - Gastrointestinal wall thickening [Unknown]
  - Gastric ulcer [Unknown]
  - Embolism arterial [Unknown]
  - Ileal ulcer [Unknown]
  - Large intestinal ulcer [Unknown]
  - Inflammation [Unknown]
  - Ultrasound abdomen abnormal [Unknown]
  - Intestinal dilatation [Unknown]
  - Abdominal discomfort [Unknown]
  - Vomiting [Unknown]
  - Rectal ulcer [Unknown]
  - Intestinal dilatation [Unknown]
  - Large intestinal stenosis [Unknown]
  - Weight decreased [Unknown]
  - Abdominal abscess [Unknown]
  - Vomiting [Recovered/Resolved]
  - Varicella [Unknown]

NARRATIVE: CASE EVENT DATE: 201305
